FAERS Safety Report 15008314 (Version 2)
Quarter: 2018Q2

REPORT INFORMATION
  Report Type: Spontaneous
  Country: US (occurrence: US)
  Receive Date: 20180613
  Receipt Date: 20180614
  Transmission Date: 20180711
  Serious: Yes (Hospitalization)
  Sender: FDA-Public Use
  Company Number: US-CELGENEUS-USA-20180602282

PATIENT
  Age: 83 Year
  Sex: Male

DRUGS (3)
  1. POMALYST [Suspect]
     Active Substance: POMALIDOMIDE
     Dosage: 2 MILLIGRAM
     Route: 048
     Dates: start: 201803
  2. POMALYST [Suspect]
     Active Substance: POMALIDOMIDE
     Dosage: 3 MILLIGRAM
     Route: 048
     Dates: start: 201712
  3. POMALYST [Suspect]
     Active Substance: POMALIDOMIDE
     Indication: PLASMA CELL MYELOMA
     Dosage: 4 MILLIGRAM
     Route: 048
     Dates: start: 20170707

REACTIONS (2)
  - Colon cancer [Unknown]
  - Gallbladder cancer [Unknown]

NARRATIVE: CASE EVENT DATE: 201805
